FAERS Safety Report 6761977-2 (Version None)
Quarter: 2010Q2

REPORT INFORMATION
  Report Type: 
  Country: None (occurrence: None)
  Receive Date: 20100609
  Receipt Date: 20100607
  Transmission Date: 20101027
  Serious: Yes (Life-Threatening, Hospitalization)
  Sender: FDA-Public Use
  Company Number: US-BAYER-201014600NA

PATIENT
  Age: 77 Year
  Sex: Male
  Weight: 110 kg

DRUGS (16)
  1. LEUKINE [Suspect]
     Indication: MALIGNANT MELANOMA
     Dosage: TOTAL DAILY DOSE: 125 ?G/M2
     Route: 058
     Dates: start: 20091130, end: 20091228
  2. LEUKINE [Suspect]
     Dosage: TOTAL DAILY DOSE: 125 ?G/M2
     Route: 058
     Dates: start: 20091228, end: 20100110
  3. LEUKINE [Suspect]
     Dosage: TOTAL DAILY DOSE: 125 ?G/M2
     Route: 058
     Dates: start: 20100208
  4. LEUKINE [Suspect]
     Dosage: TOTAL DAILY DOSE: 125 ?G/M2
     Route: 058
     Dates: start: 20100101, end: 20100110
  5. LEUKINE [Suspect]
     Dosage: TOTAL DAILY DOSE: 125 ?G/M2
     Route: 058
     Dates: start: 20091230, end: 20091231
  6. LISINOPRIL [Concomitant]
     Dosage: TOTAL DAILY DOSE: 2.5 MG
     Route: 048
     Dates: start: 19990101
  7. FLOMAX [Concomitant]
     Dosage: TOTAL DAILY DOSE: 0.4 MG
     Route: 048
     Dates: start: 20070101
  8. ASPIRIN [Concomitant]
     Dosage: TOTAL DAILY DOSE: 81 MG
     Route: 048
     Dates: start: 19990101
  9. XANAX [Concomitant]
     Dosage: 0.25MG
     Route: 048
     Dates: start: 20070101
  10. CENTRUM SILVER [Concomitant]
  11. SLOW-FE [Concomitant]
  12. VITAMIN C [Concomitant]
  13. PRILOSEC [Concomitant]
  14. COUMADIN [Concomitant]
  15. NEXIUM [Concomitant]
  16. ARIXTRA [Concomitant]
     Route: 058

REACTIONS (1)
  - PULMONARY EMBOLISM [None]
